FAERS Safety Report 24815019 (Version 4)
Quarter: 2025Q1

REPORT INFORMATION
  Report Type: Spontaneous
  Country: US (occurrence: US)
  Receive Date: 20250107
  Receipt Date: 20250129
  Transmission Date: 20250408
  Serious: Yes (Other)
  Sender: PFIZER
  Company Number: US-PFIZER INC-PV202300092623

PATIENT
  Age: 89 Year
  Sex: Male
  Weight: 104.1 kg

DRUGS (2)
  1. VYNDAMAX [Suspect]
     Active Substance: TAFAMIDIS
     Indication: Acquired ATTR amyloidosis
     Dosage: 61 MG PO (PER ORAL) DAILY #30 CAPS
     Route: 048
  2. VYNDAMAX [Suspect]
     Active Substance: TAFAMIDIS
     Indication: Cardiac amyloidosis
     Dosage: 61 MG PO (PER ORAL) DAILY #30 CAPS
     Dates: start: 20230927

REACTIONS (8)
  - Atrioventricular block complete [Unknown]
  - Atrial fibrillation [Unknown]
  - Ejection fraction decreased [Not Recovered/Not Resolved]
  - Coronary artery disease [Unknown]
  - Otitis media [Unknown]
  - Hypertension [Unknown]
  - Hyperlipidaemia [Unknown]
  - Feeling abnormal [Unknown]

NARRATIVE: CASE EVENT DATE: 20180101
